FAERS Safety Report 23960757 (Version 1)
Quarter: 2024Q2

REPORT INFORMATION
  Report Type: Spontaneous
  Country: SI (occurrence: SI)
  Receive Date: 20240611
  Receipt Date: 20240611
  Transmission Date: 20240715
  Serious: Yes (Life-Threatening, Hospitalization, Other)
  Sender: FDA-Public Use
  Company Number: None

PATIENT
  Age: 63 Year
  Sex: Female

DRUGS (12)
  1. OLANZAPINE [Suspect]
     Active Substance: OLANZAPINE
     Indication: Acute psychosis
     Dosage: 5 MG, ONCE PER DAY
     Dates: start: 2022, end: 2022
  2. RISPERIDONE [Suspect]
     Active Substance: RISPERIDONE
     Indication: Psychotic disorder
     Dosage: GRADUALLY ESCALATED TO 9 MG/DAY, DIVIDED INTO TWO DOSES
     Dates: start: 2022
  3. RISPERIDONE [Suspect]
     Active Substance: RISPERIDONE
     Dosage: GRADUALLY REDUCED TO 2 MG/DAY DIVIDED INTO TWO DOSES OVER THE FOLLOWING 3 DAYS
     Dates: start: 2022
  4. RISPERIDONE [Suspect]
     Active Substance: RISPERIDONE
     Dosage: GRADUALLY ESCALATED TO 9 MG/DAY, DIVIDED INTO TWO DOSES
     Dates: start: 2022
  5. RISPERIDONE [Suspect]
     Active Substance: RISPERIDONE
     Dosage: REDUCED TO 6 MG/DAY
     Dates: start: 202210
  6. RISPERIDONE [Suspect]
     Active Substance: RISPERIDONE
     Dosage: GRADUALLY REDUCED TO 2 MG/DAY DIVIDED INTO TWO DOSES OVER THE FOLLOWING 3 DAYS
     Dates: start: 2022, end: 2022
  7. RISPERIDONE [Suspect]
     Active Substance: RISPERIDONE
     Dosage: REDUCED TO 6 MG/DAY
     Dates: start: 202210
  8. BREXPIPRAZOLE [Suspect]
     Active Substance: BREXPIPRAZOLE
     Indication: Psychotic disorder
     Dosage: 1 MG, ONCE PER DAY
     Dates: start: 2022, end: 2022
  9. FLUPHENAZINE [Suspect]
     Active Substance: FLUPHENAZINE
     Indication: Product used for unknown indication
     Dosage: DIVIDED INTO TWO DOSES
     Dates: start: 202208
  10. FLUPHENAZINE [Suspect]
     Active Substance: FLUPHENAZINE
     Dosage: REDUCED
     Dates: start: 202210, end: 202210
  11. ARIPIPRAZOLE [Suspect]
     Active Substance: ARIPIPRAZOLE
     Indication: Psychotic disorder
     Dosage: 5 MG, ONCE PER DAY
     Dates: start: 202211
  12. ARIPIPRAZOLE [Suspect]
     Active Substance: ARIPIPRAZOLE
     Dosage: INCREASED
     Dates: start: 2022, end: 2022

REACTIONS (15)
  - Bradykinesia [Recovered/Resolved]
  - Neuroleptic malignant syndrome [Recovered/Resolved]
  - Reduced facial expression [Recovered/Resolved]
  - Staphylococcal infection [Unknown]
  - Extrapyramidal disorder [Recovered/Resolved]
  - Dysphagia [Recovered/Resolved]
  - Pneumonia bacterial [Unknown]
  - Akathisia [Recovered/Resolved]
  - Dysphonia [Recovered/Resolved]
  - Acute respiratory distress syndrome [Unknown]
  - Respiratory distress [Recovered/Resolved]
  - Cogwheel rigidity [Recovered/Resolved]
  - Enterobacter infection [Unknown]
  - Influenza [Unknown]
  - Pneumonia [Recovered/Resolved]

NARRATIVE: CASE EVENT DATE: 20220101
